FAERS Safety Report 6103852-2 (Version None)
Quarter: 2009Q1

REPORT INFORMATION
  Report Type: 
  Country: None (occurrence: None)
  Receive Date: 20090227
  Receipt Date: 20090218
  Transmission Date: 20090719
  Serious: Yes (Hospitalization, Other)
  Sender: FDA-Public Use
  Company Number: 56917

PATIENT
  Age: 67 Year
  Sex: Male

DRUGS (2)
  1. CISPLATIN [Suspect]
     Indication: ADENOCARCINOMA
  2. VINORELBINE TARTRATE [Suspect]
     Indication: ADENOCARCINOMA

REACTIONS (2)
  - METASTASIS [None]
  - MULTIPLE MYELOMA [None]
